FAERS Safety Report 6762906-8 (Version None)
Quarter: 2010Q2

REPORT INFORMATION
  Report Type: 
  Country: None (occurrence: None)
  Receive Date: 20100608
  Receipt Date: 20100608
  Transmission Date: 20101027
  Serious: Yes (Other)
  Sender: FDA-Public Use
  Company Number: None

PATIENT
  Sex: Male
  Weight: 120.2032 kg

DRUGS (1)
  1. ROPINIROLE [Suspect]
     Indication: RESTLESS LEGS SYNDROME
     Dosage: 4MG NIGHTLY PO
     Route: 048
     Dates: start: 20020101, end: 20100601

REACTIONS (3)
  - COMPULSIVE SEXUAL BEHAVIOUR [None]
  - GAMBLING [None]
  - IMPULSIVE BEHAVIOUR [None]
